FAERS Safety Report 7807679-2 (Version None)
Quarter: 2011Q4

REPORT INFORMATION
  Report Type: 
  Country: None (occurrence: None)
  Receive Date: 20111011
  Receipt Date: 20111003
  Transmission Date: 20120403
  Serious: Yes (Death, Hospitalization)
  Sender: FDA-Public Use
  Company Number: US-PFIZER INC-2011241045

PATIENT
  Age: 69 Year
  Sex: Female

DRUGS (4)
  1. AMIODARONE HCL [Interacting]
     Dosage: UNK
     Route: 042
  2. AMIODARONE HCL [Interacting]
     Dosage: UNKN
     Route: 042
  3. AMIODARONE HCL [Suspect]
     Indication: ATRIAL FIBRILLATION
     Dosage: 400 MG, 3X/DAY
     Route: 048
  4. COLCHICINE [Interacting]
     Indication: PERICARDITIS
     Dosage: 0.6 MG, 2X/DAY
     Route: 048

REACTIONS (10)
  - TOXICITY TO VARIOUS AGENTS [None]
  - DIARRHOEA [None]
  - DRUG INTERACTION [None]
  - LEUKOCYTOSIS [None]
  - MULTI-ORGAN FAILURE [None]
  - NAUSEA [None]
  - LEUKOPENIA [None]
  - CARDIOGENIC SHOCK [None]
  - VOMITING [None]
  - CARDIAC ARREST [None]
